FAERS Safety Report 8523408-1 (Version None)
Quarter: 2012Q3

REPORT INFORMATION
  Report Type: 
  Country: None (occurrence: None)
  Receive Date: 20120720
  Receipt Date: 20120709
  Transmission Date: 20120928
  Serious: Yes (Hospitalization, Other)
  Sender: FDA-Public Use
  Company Number: US-BAYER-2011-102095

PATIENT
  Age: 47 Year
  Sex: Female
  Weight: 58.05 kg

DRUGS (7)
  1. ATIVAN [Concomitant]
     Indication: PHOBIA OF FLYING
     Dosage: 0.5 MG, UNK
  2. ANTIBIOTICS [Concomitant]
  3. YAZ [Suspect]
     Dosage: UNK
     Dates: start: 20070101, end: 20090101
  4. NEURONTIN [Concomitant]
  5. MEDROL [Concomitant]
  6. ASPIRIN [Concomitant]
  7. VICODIN [Concomitant]
     Indication: BACK PAIN

REACTIONS (6)
  - INJURY [None]
  - PAIN [None]
  - PULMONARY EMBOLISM [None]
  - DYSURIA [None]
  - SPINAL CORD HAEMORRHAGE [None]
  - GASTROINTESTINAL DISORDER [None]
